FAERS Safety Report 5639965-9 (Version None)
Quarter: 2008Q1

REPORT INFORMATION
  Report Type: 
  Country: None (occurrence: None)
  Receive Date: 20080225
  Receipt Date: 20080213
  Transmission Date: 20080703
  Serious: Yes (Hospitalization)
  Sender: FDA-Public Use
  Company Number: 2008-01361

PATIENT
  Age: 54 Year
  Sex: Female

DRUGS (1)
  1. CEFUROXIME SODIUM [Suspect]
     Indication: PNEUMONIA
     Dosage: 1 G, DAILY, TWO DIVIDED DOSES, ORAL
     Route: 048
     Dates: start: 20070101, end: 20070101

REACTIONS (1)
  - LUPUS-LIKE SYNDROME [None]
